FAERS Safety Report 4633220-1 (Version None)
Quarter: 2005Q2

REPORT INFORMATION
  Report Type: 
  Country: None (occurrence: None)
  Receive Date: 20050412
  Receipt Date: 20050412
  Transmission Date: 20051028
  Serious: Yes (Life-Threatening, Hospitalization)
  Sender: FDA-Public Use
  Company Number: None

PATIENT
  Age: 82 Year
  Sex: Male
  Weight: 70.8 kg

DRUGS (8)
  1. METHYLPREDNISOLONE [Suspect]
  2. DORZOLAMIDE/TIMOLOL [Concomitant]
  3. OXYMETAZOLINE [Concomitant]
  4. TRAVOPROST [Concomitant]
  5. TERAZOSIN HCL [Concomitant]
  6. BRIMONIDINE [Concomitant]
  7. LUBRICATING OPHTH OINT [Concomitant]
  8. POTASSIUM CHLORIDE [Concomitant]

REACTIONS (1)
  - UPPER GASTROINTESTINAL HAEMORRHAGE [None]
